FAERS Safety Report 4356465-7 (Version None)
Quarter: 2004Q2

REPORT INFORMATION
  Report Type: 
  Country: None (occurrence: None)
  Receive Date: 20040507
  Receipt Date: 20040422
  Transmission Date: 20050107
  Serious: Yes (Hospitalization)
  Sender: FDA-Public Use
  Company Number: B01200400348

PATIENT
  Age: 75 Year
  Sex: Male

DRUGS (9)
  1. CLOPIDOGREL BISULFATE [Suspect]
     Indication: ISCHAEMIA
     Dosage: 75 MG QD
     Route: 048
     Dates: start: 20031114, end: 20031228
  2. CLOPIDOGREL BISULFATE [Suspect]
     Indication: PROPHYLAXIS
     Dosage: 75 MG QD
     Route: 048
     Dates: start: 20031114, end: 20031228
  3. ACETYLSALICYLIC ACID SRT [Concomitant]
  4. VASOTEC [Concomitant]
  5. VIOXX [Concomitant]
  6. HYDROCHLOROTHIAZIDE [Concomitant]
  7. LIPITOR [Concomitant]
  8. NORVASC [Concomitant]
  9. RANITIDINE [Concomitant]

REACTIONS (4)
  - ADENOMATOUS POLYPOSIS COLI [None]
  - DIVERTICULITIS [None]
  - DIVERTICULUM INTESTINAL HAEMORRHAGIC [None]
  - INTERNATIONAL NORMALISED RATIO DECREASED [None]
